FAERS Safety Report 5498327-8 (Version None)
Quarter: 2007Q4

REPORT INFORMATION
  Report Type: 
  Country: None (occurrence: None)
  Receive Date: 20071025
  Receipt Date: 20070511
  Transmission Date: 20080405
  Serious: Yes (Other)
  Sender: FDA-Public Use
  Company Number: A0649467A

PATIENT
  Age: 72 Year
  Sex: Female
  Weight: 50 kg

DRUGS (6)
  1. ADVAIR DISKUS 100/50 [Suspect]
     Indication: DRUG USE FOR UNKNOWN INDICATION
     Dosage: 1PUFF TWICE PER DAY
     Route: 055
     Dates: start: 20001109, end: 20061221
  2. OS-CAL + D [Concomitant]
  3. FOSAMAX [Concomitant]
  4. LEVOXYL [Concomitant]
  5. CYTOTEC [Concomitant]
  6. CLINORIL [Concomitant]

REACTIONS (1)
  - RASH [None]
